FAERS Safety Report 10866439 (Version 1)
Quarter: 2015Q1

REPORT INFORMATION
  Report Type: Spontaneous
  Country: US (occurrence: None)
  Receive Date: 20150220
  Receipt Date: 20150220
  Transmission Date: 20150721
  Serious: Yes (Other)
  Sender: FDA-Public Use
  Company Number: 201502075

PATIENT
  Age: 63 Year
  Sex: Male

DRUGS (1)
  1. TESTIM [Suspect]
     Active Substance: TESTOSTERONE
     Indication: BLOOD TESTOSTERONE DECREASED
     Route: 062
     Dates: start: 20090221, end: 20130211

REACTIONS (3)
  - Emotional disorder [None]
  - Pain [None]
  - Cardiac disorder [None]

NARRATIVE: CASE EVENT DATE: 20130211
